APPROVED DRUG PRODUCT: LENALIDOMIDE
Active Ingredient: LENALIDOMIDE
Strength: 20MG
Dosage Form/Route: CAPSULE;ORAL
Application: A217554 | Product #005 | TE Code: AB
Applicant: DEVA HOLDING AS
Approved: May 22, 2025 | RLD: No | RS: No | Type: RX